FAERS Safety Report 6243687-3 (Version None)
Quarter: 2009Q2

REPORT INFORMATION
  Report Type: 
  Country: None (occurrence: None)
  Receive Date: 20090624
  Receipt Date: 20090610
  Transmission Date: 20091009
  Serious: Yes (Other)
  Sender: FDA-Public Use
  Company Number: US-PFIZER INC-2009225871

PATIENT
  Sex: Female

DRUGS (10)
  1. PROVERA [Suspect]
     Indication: HORMONE REPLACEMENT THERAPY
     Dosage: 2.5 MG, UNK
     Route: 048
     Dates: start: 19930101, end: 19951101
  2. PREMARIN [Suspect]
     Indication: HORMONE REPLACEMENT THERAPY
     Dosage: 0.625 MG, UNK
     Dates: start: 19930101, end: 19951101
  3. PREMPRO [Suspect]
     Indication: HORMONE REPLACEMENT THERAPY
     Dosage: 0.625/2.5MG
     Dates: start: 19960301, end: 19970101
  4. CYCRIN [Suspect]
     Indication: HORMONE REPLACEMENT THERAPY
     Dosage: 2.5 MG, UNK
     Dates: start: 19951101, end: 19960201
  5. TOPRAL [Concomitant]
     Indication: BLOOD PRESSURE
     Dosage: UNK
     Dates: start: 19951001, end: 20040101
  6. DIGOXIN [Concomitant]
     Indication: HEART RATE IRREGULAR
     Dosage: UNK
     Dates: start: 19760101, end: 20040101
  7. SYNTHROID [Concomitant]
     Indication: THYROID DISORDER
     Dosage: 0.125 MG, 1X/DAY
     Dates: start: 19950901, end: 20040101
  8. ZOLOFT [Concomitant]
     Indication: FIBROMYALGIA
     Dosage: 100 MG, 1X/DAY
     Dates: start: 19950901, end: 20040101
  9. LODINE [Concomitant]
     Indication: ARTHRITIS
     Dosage: UNK
     Dates: start: 19940401, end: 19990301
  10. PRILOSEC [Concomitant]
     Indication: ABDOMINAL DISCOMFORT
     Dosage: UNK
     Dates: start: 19931101, end: 19990201

REACTIONS (1)
  - BREAST CANCER FEMALE [None]
